FAERS Safety Report 5006892-X (Version None)
Quarter: 2006Q2

REPORT INFORMATION
  Report Type: 
  Country: None (occurrence: None)
  Receive Date: 20060516
  Receipt Date: 20060503
  Transmission Date: 20061013
  Serious: Yes (Other)
  Sender: FDA-Public Use
  Company Number: TRP_0770_2006

PATIENT
  Age: 53 Year
  Sex: Male

DRUGS (4)
  1. RIBASPHERE [Suspect]
     Indication: HEPATITIS C
     Dosage: 1000 MG QDAY PO
     Route: 048
     Dates: start: 20050623
  2. PEGASYS [Suspect]
     Indication: HEPATITIS C
     Dosage: 1 DF QWK SC
     Route: 058
     Dates: start: 20050623
  3. NEURONTIN [Concomitant]
  4. DEPAKOTE [Concomitant]

REACTIONS (3)
  - AMNESIA [None]
  - PETIT MAL EPILEPSY [None]
  - ROAD TRAFFIC ACCIDENT [None]
